FAERS Safety Report 7156564-0 (Version None)
Quarter: 2010Q4

REPORT INFORMATION
  Report Type: 
  Country: None (occurrence: None)
  Receive Date: 20101214
  Receipt Date: 20091109
  Transmission Date: 20110411
  Serious: No
  Sender: FDA-Public Use
  Company Number: US-ASTRAZENECA-2009SE25609

PATIENT
  Age: 24380 Day
  Sex: Male

DRUGS (1)
  1. CRESTOR [Suspect]
     Route: 048
     Dates: start: 20091005, end: 20091108

REACTIONS (4)
  - DIZZINESS [None]
  - DYSPEPSIA [None]
  - MYALGIA [None]
  - NAUSEA [None]
